FAERS Safety Report 5251312-3 (Version None)
Quarter: 2007Q1

REPORT INFORMATION
  Report Type: 
  Country: None (occurrence: None)
  Receive Date: 20061201
  Receipt Date: 20060731
  Transmission Date: 20070707
  Serious: No
  Sender: FDA-Public Use
  Company Number: 2006PV018609

PATIENT
  Age: 59 Year
  Sex: Female
  Weight: 69.4003 kg

DRUGS (11)
  1. BYETTA [Suspect]
     Indication: DIABETES MELLITUS NON-INSULIN-DEPENDENT
     Dosage: SEE IMAGE
     Route: 058
     Dates: start: 20060501, end: 20060601
  2. BYETTA [Suspect]
     Indication: DIABETES MELLITUS NON-INSULIN-DEPENDENT
     Dosage: SEE IMAGE
     Route: 058
     Dates: start: 20060601
  3. LEVOXYL [Concomitant]
  4. MULTI-VITAMINS [Concomitant]
  5. OSTEO BI-FLEX [Concomitant]
  6. CALCIUM [Concomitant]
  7. VITAMIN D [Concomitant]
  8. ZINC [Concomitant]
  9. MAGNESIUM [Concomitant]
  10. FISH OIL [Concomitant]
  11. FOLIC ACID [Concomitant]

REACTIONS (2)
  - ARTHRITIS [None]
  - INJECTION SITE HAEMORRHAGE [None]
